FAERS Safety Report 21411977 (Version 1)
Quarter: 2022Q4

REPORT INFORMATION
  Report Type: Spontaneous
  Country: US (occurrence: None)
  Receive Date: 20221005
  Receipt Date: 20221005
  Transmission Date: 20230113
  Serious: No
  Sender: FDA-Public Use
  Company Number: None

PATIENT
  Age: 41 Year
  Sex: Female
  Weight: 54 kg

DRUGS (1)
  1. ACETAMINOPHEN\OXYCODONE HYDROCHLORIDE [Suspect]
     Active Substance: ACETAMINOPHEN\OXYCODONE HYDROCHLORIDE
     Indication: Back pain
     Dosage: OTHER QUANTITY : 55 TABLET(S);?FREQUENCY : AS NEEDED;?
     Route: 048
     Dates: start: 20220819, end: 20221002

REACTIONS (9)
  - Malaise [None]
  - Pain [None]
  - Arthralgia [None]
  - Fatigue [None]
  - Nausea [None]
  - Feeling abnormal [None]
  - Hangover [None]
  - Product substitution issue [None]
  - Drug ineffective [None]
